FAERS Safety Report 7259583-9 (Version None)
Quarter: 2011Q1

REPORT INFORMATION
  Report Type: 
  Country: None (occurrence: None)
  Receive Date: 20110130
  Receipt Date: 20101021
  Transmission Date: 20110831
  Serious: No
  Sender: FDA-Public Use
  Company Number: US-ABBOTT-10P-035-0680276-00

PATIENT
  Sex: Female
  Weight: 77.18 kg

DRUGS (6)
  1. VITAMIN D [Concomitant]
     Indication: VITAMIN SUPPLEMENTATION
  2. CALCIUM [Concomitant]
     Indication: SUPPLEMENTATION THERAPY
  3. FISH OIL [Concomitant]
     Indication: SUPPLEMENTATION THERAPY
  4. HUMIRA [Suspect]
     Indication: PSORIATIC ARTHROPATHY
  5. HUMIRA [Suspect]
     Indication: PSORIASIS
     Dates: start: 20100913
  6. ASPIRIN [Concomitant]
     Indication: PRODUCT USED FOR UNKNOWN INDICATION

REACTIONS (2)
  - FATIGUE [None]
  - PSORIASIS [None]
